FAERS Safety Report 5621517-8 (Version None)
Quarter: 2008Q1

REPORT INFORMATION
  Report Type: 
  Country: None (occurrence: None)
  Receive Date: 20080114
  Receipt Date: 20070530
  Transmission Date: 20080703
  Serious: Yes (Hospitalization)
  Sender: FDA-Public Use
  Company Number: A03200703431

PATIENT
  Age: 57 Year
  Sex: Male

DRUGS (5)
  1. PLAVIX [Suspect]
     Indication: CARDIAC OPERATION
     Dosage: 75 MG QD - ORAL
     Route: 048
     Dates: start: 20010101, end: 20070501
  2. OXYCODONE WITH ASPIRIN [Concomitant]
  3. IBUPROFEN [Concomitant]
  4. METOPROLOL TARTRATE [Concomitant]
  5. ACETYLSALICYLIC ACID SRT [Concomitant]

REACTIONS (4)
  - ANGINA PECTORIS [None]
  - CAROTID ARTERY OCCLUSION [None]
  - DIZZINESS [None]
  - LOSS OF CONSCIOUSNESS [None]
